FAERS Safety Report 25812250 (Version 1)
Quarter: 2025Q3

REPORT INFORMATION
  Report Type: Spontaneous
  Country: US (occurrence: US)
  Receive Date: 20250917
  Receipt Date: 20250917
  Transmission Date: 20251020
  Serious: No
  Sender: ROCHE
  Company Number: US-ROCHE-10000388733

PATIENT
  Sex: Female

DRUGS (13)
  1. ACTEMRA [Suspect]
     Active Substance: TOCILIZUMAB
     Indication: Rheumatoid arthritis
     Dosage: STRENGTH: 162MG/0.9ML
     Route: 058
  2. ACTEMRA [Suspect]
     Active Substance: TOCILIZUMAB
  3. Leflunomide tab 20 mg [Concomitant]
  4. Methocarbamo tab 750 mg [Concomitant]
  5. Nucynta tab 50 mg [Concomitant]
  6. Pregabalin cap 50 mg [Concomitant]
  7. Propranolol tab 20 mg [Concomitant]
  8. Methotrexate tab 2.5 mg [Concomitant]
  9. Prednisone tab 10 mg [Concomitant]
  10. Butalbital-A tab 50-325 mg [Concomitant]
  11. Duloxetine H CPE 30 mg [Concomitant]
  12. Diclofenac S TBE 75 mg [Concomitant]
  13. Hydroxychlor tab 200 mg [Concomitant]

REACTIONS (1)
  - Injection site erythema [Recovered/Resolved]
